FAERS Safety Report 5285275-1 (Version None)
Quarter: 2007Q2

REPORT INFORMATION
  Report Type: 
  Country: None (occurrence: None)
  Receive Date: 20070403
  Receipt Date: 20070324
  Transmission Date: 20071010
  Serious: Yes (Other)
  Sender: FDA-Public Use
  Company Number: US-PFIZER INC-2007023576

PATIENT
  Sex: Female
  Weight: 70.3 kg

DRUGS (3)
  1. TIKOSYN [Suspect]
     Indication: ATRIAL FIBRILLATION
     Route: 048
  2. ASPIRIN [Concomitant]
  3. TOPROL-XL [Concomitant]

REACTIONS (5)
  - COAGULATION TEST ABNORMAL [None]
  - DERMATITIS [None]
  - HYPERHIDROSIS [None]
  - PYREXIA [None]
  - WHITE BLOOD CELL COUNT DECREASED [None]
